FAERS Safety Report 7587317-7 (Version None)
Quarter: 2011Q3

REPORT INFORMATION
  Report Type: 
  Country: None (occurrence: None)
  Receive Date: 20110701
  Receipt Date: 20110623
  Transmission Date: 20111222
  Serious: Yes (Other)
  Sender: FDA-Public Use
  Company Number: JP-MERCK-1106USA01422

PATIENT
  Age: 86 Year
  Sex: Male
  Weight: 54 kg

DRUGS (6)
  1. RABEPRAZOLE SODIUM [Concomitant]
     Route: 048
  2. GASMOTIN [Concomitant]
     Route: 048
  3. HUMALOG [Concomitant]
     Dosage: TOTAL DAILY DOSE 8 (UNDER 1000 UNIT)
     Route: 058
  4. HYZAAR [Suspect]
     Indication: BLOOD PRESSURE INCREASED
     Route: 048
  5. ZOLPIDEM [Concomitant]
     Route: 048
  6. SHAKUYAKU-KANZO-TO [Suspect]
     Indication: MUSCLE SPASMS
     Route: 048

REACTIONS (2)
  - RHABDOMYOLYSIS [None]
  - PSEUDOALDOSTERONISM [None]
